FAERS Safety Report 5490518-5 (Version None)
Quarter: 2007Q4

REPORT INFORMATION
  Report Type: 
  Country: None (occurrence: None)
  Receive Date: 20071018
  Receipt Date: 20071018
  Transmission Date: 20080405
  Serious: No
  Sender: FDA-Public Use
  Company Number: None

PATIENT
  Age: 28 Year
  Sex: Male

DRUGS (2)
  1. LARIAM [Suspect]
     Indication: MALARIA PROPHYLAXIS
     Dosage: 250 MG ONE TAB Q WK PO
     Route: 048
     Dates: start: 20071001
  2. XANAX [Concomitant]

REACTIONS (3)
  - ANXIETY [None]
  - HALLUCINATION [None]
  - PANIC ATTACK [None]
